FAERS Safety Report 17905347 (Version 2)
Quarter: 2020Q3

REPORT INFORMATION
  Report Type: Spontaneous
  Country: US (occurrence: US)
  Receive Date: 20200616
  Receipt Date: 20200924
  Transmission Date: 20201103
  Serious: No
  Sender: FDA-Public Use
  Company Number: NVSC2020US167898

PATIENT
  Sex: Female

DRUGS (1)
  1. COSENTYX [Suspect]
     Active Substance: SECUKINUMAB
     Indication: PRODUCT USED FOR UNKNOWN INDICATION
     Dosage: 150 MG, QMO (SENSOREADY PEN)(X2)
     Route: 065
     Dates: start: 20190723

REACTIONS (3)
  - Device leakage [Unknown]
  - Incorrect dose administered [Unknown]
  - Accidental exposure to product [Unknown]
